FAERS Safety Report 9728149 (Version 2)
Quarter: 2014Q1

REPORT INFORMATION
  Report Type: Spontaneous
  Country: CH (occurrence: None)
  Receive Date: 20131202
  Receipt Date: 20140313
  Transmission Date: 20141002
  Serious: Yes (Life-Threatening)
  Sender: FDA-Public Use
  Company Number: 20130676

PATIENT
  Age: 77 Year
  Sex: Female
  Weight: 63 kg

DRUGS (8)
  1. FERINJECT [Suspect]
     Indication: IRON DEFICIENCY ANAEMIA
     Dosage: 500 MG (1 IN 1 TOTAL)
     Route: 041
     Dates: start: 20130719
  2. ENDOXAN (CYCLOPHOSPHAMIDE) .50 MG [Concomitant]
  3. IMUREK (AZATHIOPRINE) .50 MG [Concomitant]
  4. MICARDIS (TELMISARTAN), 80 MG [Concomitant]
  5. PANTOPRAZOL (PANTOPRAZOL SODIUM SESQUIHYDRATE) 40 MG? [Concomitant]
  6. PREDNISOLONE, 5 MG [Concomitant]
  7. AMLODIPINE, 10 MG [Concomitant]
  8. BISOPROLOL, .5 MG [Concomitant]

REACTIONS (1)
  - Circulatory collapse [None]
